FAERS Safety Report 5221624-8 (Version None)
Quarter: 2007Q1

REPORT INFORMATION
  Report Type: 
  Country: None (occurrence: None)
  Receive Date: 20070126
  Receipt Date: 20070126
  Transmission Date: 20070707
  Serious: Yes (Hospitalization, Disabling, Other)
  Sender: FDA-Public Use
  Company Number: None

PATIENT
  Age: 60 Year
  Sex: Female
  Weight: 108.8633 kg

DRUGS (1)
  1. LEVAQUIN [Suspect]
     Indication: CELLULITIS
     Dosage: 500MG IV DRIP
     Route: 041
     Dates: start: 20070118, end: 20070125

REACTIONS (7)
  - ABNORMAL BEHAVIOUR [None]
  - ANXIETY [None]
  - HALLUCINATION [None]
  - LETHARGY [None]
  - REFUSAL OF TREATMENT BY RELATIVE [None]
  - SPEECH DISORDER [None]
  - THINKING ABNORMAL [None]
